FAERS Safety Report 6593195-5 (Version None)
Quarter: 2010Q1

REPORT INFORMATION
  Report Type: 
  Country: None (occurrence: None)
  Receive Date: 20100212
  Receipt Date: 20100201
  Transmission Date: 20100710
  Serious: Yes (Life-Threatening, Hospitalization)
  Sender: FDA-Public Use
  Company Number: TIF2010A00008

PATIENT
  Age: 66 Year
  Sex: Female

DRUGS (3)
  1. ACTOPLUS MET [Suspect]
     Indication: DIABETES MELLITUS
     Dosage: UNK. (1 IN 1 D); ORAL
     Route: 048
     Dates: start: 20070730, end: 20100125
  2. REPAGLINIDE [Suspect]
     Indication: DIABETES MELLITUS
     Dosage: UNK. (1 IN 1 D); ORAL
     Route: 048
     Dates: start: 20070130, end: 20100125
  3. LYRICA [Concomitant]

REACTIONS (4)
  - HAEMODIALYSIS [None]
  - LACTIC ACIDOSIS [None]
  - RENAL FAILURE ACUTE [None]
  - SHOCK [None]
